FAERS Safety Report 8978186 (Version 3)
Quarter: 2013Q2

REPORT INFORMATION
  Report Type: Spontaneous
  Country: BR (occurrence: BR)
  Receive Date: 20121221
  Receipt Date: 20130627
  Transmission Date: 20140414
  Serious: Yes (Other)
  Sender: FDA-Public Use
  Company Number: BR-PFIZER INC-2012321221

PATIENT
  Age: 60 Year
  Sex: Male
  Weight: 72.5 kg

DRUGS (5)
  1. SUTENT [Suspect]
     Indication: RENAL CELL CARCINOMA
     Dosage: 50 MG ONCE DAILY, CYCLIC (4 PER 2)
     Route: 048
     Dates: start: 20121008, end: 20130624
  2. ERYTHROPOIETIN [Concomitant]
     Dosage: UNSPECIFIED DOSAGE, 3X/WEEK
  3. NORIPURUM [Concomitant]
     Dosage: UNSPECIFIED DOSAGE, 1X/WEEK
  4. VITAMIN B COMPLEX [Concomitant]
     Dosage: UNSPECIFIED DOSAGE, DAILY
  5. VITAMIN C [Concomitant]
     Dosage: UNSPECIFIED DOSAGE, DAILY

REACTIONS (8)
  - Renal cell carcinoma [Unknown]
  - Eye haemorrhage [Unknown]
  - Mouth haemorrhage [Unknown]
  - Platelet count decreased [Unknown]
  - Haematocrit decreased [Unknown]
  - Haemoglobin decreased [Unknown]
  - Glossodynia [Unknown]
  - Disease progression [Unknown]
